FAERS Safety Report 6902907-X (Version None)
Quarter: 2010Q3

REPORT INFORMATION
  Report Type: 
  Country: None (occurrence: None)
  Receive Date: 20100803
  Receipt Date: 20080710
  Transmission Date: 20110219
  Serious: No
  Sender: FDA-Public Use
  Company Number: US-PFIZER INC-2008058490

PATIENT
  Sex: Female
  Weight: 106.81 kg

DRUGS (5)
  1. LYRICA [Suspect]
     Indication: PAIN IN EXTREMITY
     Route: 048
     Dates: start: 20060101
  2. LYRICA [Suspect]
     Indication: CARPAL TUNNEL SYNDROME
  3. OXYCONTIN [Concomitant]
  4. VITAMIN TAB [Concomitant]
  5. ANTACID TAB [Concomitant]

REACTIONS (6)
  - ANXIETY [None]
  - DRY EYE [None]
  - DRY MOUTH [None]
  - FATIGUE [None]
  - UNEVALUABLE EVENT [None]
  - WEIGHT INCREASED [None]
